FAERS Safety Report 8794874 (Version 2)
Quarter: 2015Q1

REPORT INFORMATION
  Report Type: Report from Study
  Country: US (occurrence: US)
  Receive Date: 20120918
  Receipt Date: 20150313
  Transmission Date: 20150721
  Serious: Yes (Death)
  Sender: FDA-Public Use
  Company Number: US-ROCHE-1123227

PATIENT
  Sex: Female

DRUGS (15)
  1. ZANTAC [Concomitant]
     Active Substance: RANITIDINE HYDROCHLORIDE
     Route: 042
  2. FILGRASTIM [Concomitant]
     Active Substance: FILGRASTIM
     Route: 058
  3. BENADRYL [Concomitant]
     Active Substance: DIPHENHYDRAMINE HYDROCHLORIDE
     Route: 042
  4. COMPAZINE [Concomitant]
     Active Substance: PROCHLORPERAZINE MALEATE
  5. COZAAR [Concomitant]
     Active Substance: LOSARTAN POTASSIUM
     Route: 065
  6. ARANESP [Concomitant]
     Active Substance: DARBEPOETIN ALFA
     Route: 065
  7. ZOMETA [Concomitant]
     Active Substance: ZOLEDRONIC ACID
     Route: 042
  8. AVASTIN [Suspect]
     Active Substance: BEVACIZUMAB
     Indication: BREAST CANCER FEMALE
     Route: 042
     Dates: start: 20051130
  9. TAXOL [Concomitant]
     Active Substance: PACLITAXEL
     Route: 042
  10. AROMASIN [Concomitant]
     Active Substance: EXEMESTANE
     Route: 065
  11. KYTRIL [Concomitant]
     Active Substance: GRANISETRON HYDROCHLORIDE
     Route: 042
  12. KEFLEX [Concomitant]
     Active Substance: CEPHALEXIN
  13. DECADRON [Concomitant]
     Active Substance: DEXAMETHASONE
     Route: 042
  14. COUMADIN [Concomitant]
     Active Substance: WARFARIN SODIUM
     Route: 065
  15. NORVASC [Concomitant]
     Active Substance: AMLODIPINE BESYLATE
     Route: 048

REACTIONS (11)
  - Decreased appetite [Recovering/Resolving]
  - Oropharyngeal pain [Unknown]
  - Weight decreased [Unknown]
  - Off label use [Unknown]
  - Nausea [Unknown]
  - Headache [Unknown]
  - Death [Fatal]
  - Heart rate increased [Unknown]
  - Fatigue [Unknown]
  - Vomiting [Unknown]
  - Back pain [Unknown]
